FAERS Safety Report 16302188 (Version 1)
Quarter: 2019Q2

REPORT INFORMATION
  Report Type: Spontaneous
  Country: US (occurrence: US)
  Receive Date: 20190405
  Receipt Date: 20190405
  Transmission Date: 20190711
  Serious: Yes (Other)
  Sender: FDA-Public Use
  Company Number: None

PATIENT
  Age: 55 Year
  Sex: Female
  Weight: 49.9 kg

DRUGS (1)
  1. ESTRADIOL VAGINAL CREAM 0.01 % UNSCENTE D [Suspect]
     Active Substance: ESTRADIOL
     Indication: HORMONE LEVEL ABNORMAL
     Dosage: ?          QUANTITY:^1 RENT MAM-I;   INSERTRD INTO VAGINA?
     Dates: start: 20190323, end: 20190325

REACTIONS (3)
  - Vulvovaginal pain [None]
  - Enlarged clitoris [None]
  - Abdominal distension [None]

NARRATIVE: CASE EVENT DATE: 20190323
